FAERS Safety Report 26179526 (Version 1)
Quarter: 2025Q4

REPORT INFORMATION
  Report Type: Spontaneous
  Country: EU (occurrence: EU)
  Receive Date: 20251219
  Receipt Date: 20251219
  Transmission Date: 20260117
  Serious: Yes (Hospitalization)
  Sender: MYLAN
  Company Number: None

PATIENT
  Age: 75 Year
  Sex: Female

DRUGS (13)
  1. OXALIPLATIN [Suspect]
     Active Substance: OXALIPLATIN
     Indication: Mantle cell lymphoma
     Dosage: 130 MILLIGRAM/SQ. METER, Q3W
     Dates: start: 20120817, end: 20251130
  2. ETOPOSIDE [Suspect]
     Active Substance: ETOPOSIDE
     Indication: Mantle cell lymphoma
     Dosage: 630 MILLIGRAM, QD
     Dates: start: 20130123, end: 20130127
  3. TECARTUS [Suspect]
     Active Substance: BREXUCABTAGENE AUTOLEUCEL
     Indication: Mantle cell lymphoma
     Dosage: 1 DOSAGE FORM,1 TOTAL
     Dates: start: 20230817, end: 20230817
  4. CYCLOPHOSPHAMIDE [Suspect]
     Active Substance: CYCLOPHOSPHAMIDE
     Indication: Mantle cell lymphoma
     Dosage: 2395 MILLIGRAM,1 TOTAL
     Dates: start: 20120806, end: 20121227
  5. VINCRISTINE SULFATE [Suspect]
     Active Substance: VINCRISTINE SULFATE
     Indication: Mantle cell lymphoma
     Dosage: 4 MILLIGRAM,1 TOTAL
     Dates: start: 20120806, end: 20121227
  6. RITUXIMAB [Suspect]
     Active Substance: RITUXIMAB
     Indication: Mantle cell lymphoma
     Dosage: 375 MILLIGRAM/SQ. METER, Q3W
     Dates: start: 20120820, end: 20121227
  7. RITUXIMAB [Suspect]
     Active Substance: RITUXIMAB
     Dosage: 375 MILLIGRAM/SQ. METER, Q3W
     Dates: start: 20160708, end: 20160728
  8. CYTARABINE [Suspect]
     Active Substance: CYTARABINE
     Indication: Mantle cell lymphoma
     Dosage: 2 GRAM PER SQUARE METRE,1 CYCLE
     Dates: start: 20120818, end: 20130126
  9. CYTARABINE [Suspect]
     Active Substance: CYTARABINE
     Dosage: 2 GRAM PER SQUARE METRE,1 CYCLE
     Dates: start: 20160528, end: 20160730
  10. CARMUSTINE [Suspect]
     Active Substance: CARMUSTINE
     Indication: Mantle cell lymphoma
     Dosage: 471 MILLIGRAM,1 TOTAL
     Dates: start: 20130123, end: 20130123
  11. MELPHALAN [Suspect]
     Active Substance: MELPHALAN
     Indication: Mantle cell lymphoma
     Dosage: 220 MILLIGRAM,1 TOTAL
     Dates: start: 20130128, end: 20130128
  12. BORTEZOMIB [Suspect]
     Active Substance: BORTEZOMIB
     Indication: Mantle cell lymphoma
     Dosage: 2.65 MILLIGRAM,1 CYCLE
     Dates: start: 20160526, end: 20160731
  13. IBRUTINIB [Suspect]
     Active Substance: IBRUTINIB
     Indication: Mantle cell lymphoma
     Dosage: 560 MILLIGRAM, QD
     Route: 061
     Dates: start: 20170913, end: 202304

REACTIONS (1)
  - Anal squamous cell carcinoma [Not Recovered/Not Resolved]

NARRATIVE: CASE EVENT DATE: 20251106
